FAERS Safety Report 9385417 (Version 2)
Quarter: 2014Q1

REPORT INFORMATION
  Report Type: Spontaneous
  Country: JP (occurrence: JP)
  Receive Date: 20130705
  Receipt Date: 20140107
  Transmission Date: 20141002
  Serious: No
  Sender: FDA-Public Use
  Company Number: JP-009507513-1307JPN002379

PATIENT
  Age: 70 Year
  Sex: Male

DRUGS (9)
  1. GLACTIV [Suspect]
     Indication: TYPE 2 DIABETES MELLITUS
     Dosage: 50 MG, ONCE A DAY
     Route: 048
     Dates: start: 20130422, end: 20130702
  2. AMARYL [Concomitant]
     Dosage: UNK
     Dates: start: 20130419
  3. OXYCONTIN [Concomitant]
     Dosage: UNK
     Dates: start: 20130310, end: 20130816
  4. OXINORM (ORGOTEIN) [Concomitant]
     Dosage: UNK
     Dates: start: 20130310, end: 20130816
  5. CRAVIT [Concomitant]
     Dosage: UNK
     Dates: start: 20130425, end: 20130429
  6. PARIET [Concomitant]
     Dosage: UNK
     Dates: start: 20130221, end: 20130801
  7. MUCOSTA [Concomitant]
     Dosage: UNK
     Dates: start: 20130221, end: 20130801
  8. URSO [Concomitant]
     Dosage: UNK
     Dates: start: 20130501, end: 20130801
  9. GEMZAR [Concomitant]

REACTIONS (1)
  - Hepatic steatosis [Not Recovered/Not Resolved]
